FAERS Safety Report 11421704 (Version 3)
Quarter: 2015Q4

REPORT INFORMATION
  Report Type: Spontaneous
  Country: CA (occurrence: CA)
  Receive Date: 20150827
  Receipt Date: 20151224
  Transmission Date: 20160304
  Serious: No
  Sender: FDA-Public Use
  Company Number: CA-ROCHE-1626276

PATIENT
  Sex: Female

DRUGS (4)
  1. SEREVENT DISKUS [Concomitant]
     Active Substance: SALMETEROL XINAFOATE
  2. VENTOLIN [Concomitant]
     Active Substance: ALBUTEROL SULFATE
  3. XOLAIR [Suspect]
     Active Substance: OMALIZUMAB
     Indication: ASTHMA
     Route: 058
     Dates: start: 20150420
  4. ALVESCO [Concomitant]
     Active Substance: CICLESONIDE

REACTIONS (5)
  - Headache [Unknown]
  - Temporomandibular joint syndrome [Unknown]
  - Arthralgia [Unknown]
  - Cognitive disorder [Unknown]
  - Hypersensitivity [Unknown]
